FAERS Safety Report 9059325 (Version 2)
Quarter: 2013Q2

REPORT INFORMATION
  Report Type: Spontaneous
  Country: JP (occurrence: JP)
  Receive Date: 20130211
  Receipt Date: 20130506
  Transmission Date: 20140414
  Serious: Yes (Hospitalization, Other)
  Sender: FDA-Public Use
  Company Number: JP-JHP PHARMACEUTICALS, LLC-JHP201200572

PATIENT
  Age: 61 Year
  Sex: Male
  Weight: 34.5 kg

DRUGS (6)
  1. DANTRIUM [Suspect]
     Indication: SPASTIC PARALYSIS
     Dosage: 25 MG, TID
     Route: 048
     Dates: end: 20121109
  2. SYMMETREL [Concomitant]
  3. AMLODIN [Concomitant]
  4. MYSLEE [Concomitant]
  5. MUCOSTA [Concomitant]
     Dosage: UNK
     Dates: start: 20121031
  6. DIOVAN [Concomitant]
     Dosage: UNK
     Dates: start: 20121025

REACTIONS (2)
  - Urinary tract infection [Recovered/Resolved]
  - Liver disorder [Recovered/Resolved]
